FAERS Safety Report 5460976-0 (Version None)
Quarter: 2007Q3

REPORT INFORMATION
  Report Type: 
  Country: None (occurrence: None)
  Receive Date: 20070822
  Receipt Date: 20060902
  Transmission Date: 20080115
  Serious: Yes (Other)
  Sender: FDA-Public Use
  Company Number: 2006098304

PATIENT
  Age: 60 Year
  Sex: Female
  Weight: 72.1219 kg

DRUGS (4)
  1. NORVASC [Suspect]
     Indication: HYPERTENSION
     Dosage: 5 MG (5 MG, FREQUENCY: QD INTERVAL: EVERY DAY)
     Dates: start: 20060101, end: 20060811
  2. HYDROCHLOROTHIAZIDE [Concomitant]
  3. ACTONEL [Concomitant]
  4. ASPIRIN [Concomitant]

REACTIONS (3)
  - HYPERSENSITIVITY [None]
  - PRURITUS [None]
  - RASH [None]
